FAERS Safety Report 4464677-7 (Version None)
Quarter: 2004Q3

REPORT INFORMATION
  Report Type: 
  Country: None (occurrence: None)
  Receive Date: 20040929
  Receipt Date: 20040908
  Transmission Date: 20050211
  Serious: Yes (Life-Threatening, Other)
  Sender: FDA-Public Use
  Company Number: USA040977858

PATIENT
  Age: 12 Year

DRUGS (1)
  1. STRATTERA [Suspect]

REACTIONS (1)
  - ANAPHYLACTIC SHOCK [None]
